FAERS Safety Report 23079663 (Version 1)
Quarter: 2023Q4

REPORT INFORMATION
  Report Type: Spontaneous
  Country: CN (occurrence: CN)
  Receive Date: 20231018
  Receipt Date: 20231018
  Transmission Date: 20240110
  Serious: Yes (Life-Threatening, Other)
  Sender: FDA-Public Use
  Company Number: None

PATIENT
  Age: 59 Year
  Sex: Female
  Weight: 55 kg

DRUGS (6)
  1. CYCLOPHOSPHAMIDE [Suspect]
     Active Substance: CYCLOPHOSPHAMIDE
     Indication: Chemotherapy
     Dosage: 1000 MG, ONE TIME IN ONE DAY, D1, DILUTED WITH 100 ML OF SODIUM CHLORIDE, FIFTH CYCLE
     Route: 041
     Dates: start: 20230924, end: 20230924
  2. CYCLOPHOSPHAMIDE [Suspect]
     Active Substance: CYCLOPHOSPHAMIDE
     Indication: Follicular lymphoma
  3. SODIUM CHLORIDE [Suspect]
     Active Substance: SODIUM CHLORIDE
     Indication: Medication dilution
     Dosage: (INJECTION, 0.9%) 100 ML, ONE TIME IN ONE DAY, D1, USED TO DILUTE 1000 MG OF CYCLOPHOSPHAMIDE, FIFTH
     Route: 041
     Dates: start: 20230924, end: 20230924
  4. DEXTROSE [Suspect]
     Active Substance: DEXTROSE\DEXTROSE MONOHYDRATE
     Indication: Medication dilution
     Dosage: (5 %, INJECTION), 100 ML, ONE TIME IN ONE DAY, D1, USED TO DILUTE 70 MG OF PIRARUBICIN HYDROCHLORIDE
     Route: 041
     Dates: start: 20230924, end: 20230924
  5. PIRARUBICIN HYDROCHLORIDE [Suspect]
     Active Substance: PIRARUBICIN HYDROCHLORIDE
     Indication: Chemotherapy
     Dosage: 70 MG, ONE TIME IN ONE DAY, D1, DILUTED WITH 100 ML OF GLUCOSE, FIFTH CYCLE
     Route: 041
     Dates: start: 20230924, end: 20230924
  6. PIRARUBICIN HYDROCHLORIDE [Suspect]
     Active Substance: PIRARUBICIN HYDROCHLORIDE
     Indication: Follicular lymphoma

REACTIONS (1)
  - White blood cell count decreased [Recovering/Resolving]

NARRATIVE: CASE EVENT DATE: 20231003
